FAERS Safety Report 19821296 (Version 1)
Quarter: 2021Q3

REPORT INFORMATION
  Report Type: Spontaneous
  Country: US (occurrence: US)
  Receive Date: 20210913
  Receipt Date: 20210913
  Transmission Date: 20211014
  Serious: No
  Sender: FDA-Public Use
  Company Number: None

PATIENT
  Age: 50 Year
  Sex: Female
  Weight: 67.5 kg

DRUGS (7)
  1. VITAMINS D3 [Concomitant]
  2. ZINC. [Concomitant]
     Active Substance: ZINC
  3. C [Concomitant]
  4. QUERCITIN [Concomitant]
  5. DOXYCYCLINE. [Concomitant]
     Active Substance: DOXYCYCLINE
  6. CASIRIVIMAB. [Suspect]
     Active Substance: CASIRIVIMAB
     Indication: COVID-19
     Dosage: ?          OTHER FREQUENCY:1 TIME INFUSION;?
     Route: 042
     Dates: start: 20210912, end: 20210912
  7. IMDEVIMAB. [Suspect]
     Active Substance: IMDEVIMAB
     Indication: COVID-19
     Dosage: ?          OTHER FREQUENCY:1 INFUSION;?
     Route: 042
     Dates: start: 20210912, end: 20210912

REACTIONS (3)
  - Chills [None]
  - Sinus congestion [None]
  - Body temperature decreased [None]

NARRATIVE: CASE EVENT DATE: 20210912
